FAERS Safety Report 8737817 (Version 7)
Quarter: 2013Q4

REPORT INFORMATION
  Report Type: Spontaneous
  Country: US (occurrence: US)
  Receive Date: 20120822
  Receipt Date: 20131224
  Transmission Date: 20140711
  Serious: Yes (Hospitalization, Disabling, Other)
  Sender: FDA-Public Use
  Company Number: US-009507513-1208USA003274

PATIENT
  Sex: Female
  Weight: 73.92 kg

DRUGS (6)
  1. FOSAMAX [Suspect]
     Indication: OSTEOPOROSIS
     Dosage: 10 MG, QD
     Route: 048
     Dates: start: 200102, end: 200110
  2. FOSAMAX [Suspect]
     Dosage: 70 MG, QW
     Route: 048
     Dates: start: 200110, end: 20100802
  3. CENTRUM SILVER [Concomitant]
     Indication: PROPHYLAXIS
     Dosage: UNK UNK, QD
     Route: 048
     Dates: start: 1990
  4. [THERAPY UNSPECIFIED] [Concomitant]
     Indication: RHEUMATOID ARTHRITIS
     Dosage: UNK
     Dates: start: 1992
  5. CALCIUM (UNSPECIFIED) [Concomitant]
     Indication: OSTEOPOROSIS
  6. CELEBREX [Concomitant]
     Indication: RHEUMATOID ARTHRITIS

REACTIONS (34)
  - Femur fracture [Recovered/Resolved]
  - Intramedullary rod insertion [Not Recovered/Not Resolved]
  - Osteoporosis [Not Recovered/Not Resolved]
  - Pulmonary embolism [Recovering/Resolving]
  - Ventricular extrasystoles [Recovered/Resolved]
  - Tachycardia [Recovered/Resolved]
  - Deep vein thrombosis [Recovering/Resolving]
  - Diverticulitis [Recovering/Resolving]
  - Tachycardia [Recovering/Resolving]
  - Sepsis [Recovered/Resolved]
  - Hypotension [Recovering/Resolving]
  - Leukocytosis [Recovering/Resolving]
  - Fall [Unknown]
  - Abdominal pain [Recovering/Resolving]
  - Femur fracture [Not Recovered/Not Resolved]
  - Hypertension [Unknown]
  - Hypercholesterolaemia [Unknown]
  - Osteoarthritis [Unknown]
  - Osteopenia [Unknown]
  - Spinal fracture [Unknown]
  - Ankle fracture [Unknown]
  - Hysterectomy [Unknown]
  - Discomfort [Recovered/Resolved]
  - Adverse event [Unknown]
  - Neuropathy peripheral [Unknown]
  - Muscular weakness [Unknown]
  - Balance disorder [Unknown]
  - Loss of proprioception [Unknown]
  - Mucosal dryness [Unknown]
  - Arthritis [Unknown]
  - Hypothyroidism [Unknown]
  - Gastrooesophageal reflux disease [Unknown]
  - Constipation [Recovered/Resolved]
  - Arthralgia [Unknown]
